FAERS Safety Report 16596751 (Version 1)
Quarter: 2019Q3

REPORT INFORMATION
  Report Type: Spontaneous
  Country: US (occurrence: US)
  Receive Date: 20190718
  Receipt Date: 20190718
  Transmission Date: 20191004
  Serious: No
  Sender: FDA-Public Use
  Company Number: None

PATIENT
  Sex: Female
  Weight: 53.1 kg

DRUGS (8)
  1. CATAPRESS PATCH [Concomitant]
  2. MULTIVITAMIN [Concomitant]
     Active Substance: VITAMINS
  3. EYLEA [Suspect]
     Active Substance: AFLIBERCEPT
     Indication: MACULAR DEGENERATION
     Dosage: ?          OTHER FREQUENCY:ONCE A MONTH;?
     Route: 047
  4. SYNTHROID [Concomitant]
     Active Substance: LEVOTHYROXINE SODIUM
  5. LUCENTIS [Suspect]
     Active Substance: RANIBIZUMAB
     Indication: MACULAR DEGENERATION
     Dosage: ?          OTHER FREQUENCY:ONCE A MONTH;?
     Route: 047
  6. VITAMINS NOS [Concomitant]
     Active Substance: VITAMINS
  7. ZEAXANTHIN [Concomitant]
     Active Substance: ZEAXANTHIN
  8. LUTEIN [Concomitant]
     Active Substance: LUTEIN

REACTIONS (12)
  - Musculoskeletal discomfort [None]
  - Anosmia [None]
  - Epistaxis [None]
  - Vitreous floaters [None]
  - Dry age-related macular degeneration [None]
  - Visual impairment [None]
  - Aura [None]
  - Abdominal discomfort [None]
  - Abnormal faeces [None]
  - Ageusia [None]
  - Procedural pain [None]
  - Migraine [None]
